FAERS Safety Report 4637322-5 (Version None)
Quarter: 2005Q2

REPORT INFORMATION
  Report Type: 
  Country: None (occurrence: None)
  Receive Date: 20050328
  Receipt Date: 20041123
  Transmission Date: 20051028
  Serious: No
  Sender: FDA-Public Use
  Company Number: USA041184507

PATIENT
  Age: 35 Year
  Sex: Male

DRUGS (3)
  1. STRATTERA [Suspect]
     Dosage: 50 MG DAY
     Dates: start: 20041001
  2. LEVOTHYROXINE SODIUM [Concomitant]
  3. LORAZEPAM [Concomitant]

REACTIONS (5)
  - BLOOD PRESSURE INCREASED [None]
  - DRUG INEFFECTIVE [None]
  - FATIGUE [None]
  - FEELING JITTERY [None]
  - HYPERHIDROSIS [None]
